FAERS Safety Report 8600357-1 (Version None)
Quarter: 2012Q3

REPORT INFORMATION
  Report Type: 
  Country: None (occurrence: None)
  Receive Date: 20120817
  Receipt Date: 20120813
  Transmission Date: 20120928
  Serious: No
  Sender: FDA-Public Use
  Company Number: US-PFIZER INC-2012197979

PATIENT
  Age: 78 Year
  Sex: Female
  Weight: 78.458 kg

DRUGS (11)
  1. EXFORGE HCT [Concomitant]
     Dosage: 10/320/25 MG, DAILY
  2. SYNTHROID [Concomitant]
     Indication: THYROID DISORDER
     Dosage: 25 UG, DAILY
  3. SIMVASTATIN [Concomitant]
     Dosage: 20 MG, DAILY
  4. LYRICA [Suspect]
     Indication: PAIN IN EXTREMITY
     Dosage: UNK, 2X/DAY
     Route: 048
  5. METFORMIN [Concomitant]
     Dosage: 1000 MG, 2X/DAY
  6. PLAVIX [Concomitant]
     Dosage: 75 MG, DAILY
  7. ACETYLSALICYLIC ACID [Concomitant]
     Dosage: 81 MG, DAILY
  8. MINOXIDIL [Concomitant]
     Dosage: 10 MG, DAILY
  9. LYRICA [Suspect]
     Dosage: UNK, 1X/DAY
     Route: 048
     Dates: start: 20120101
  10. CLONIDINE HYDROCHLORIDE [Concomitant]
     Dosage: 0.2 MG, 2X/DAY
  11. METOPROLOL [Concomitant]
     Dosage: 50 MG, 2X/DAY

REACTIONS (3)
  - PARAESTHESIA [None]
  - DRUG INEFFECTIVE [None]
  - HYPOAESTHESIA [None]
